FAERS Safety Report 11977387 (Version 1)
Quarter: 2016Q1

REPORT INFORMATION
  Report Type: Spontaneous
  Country: US (occurrence: GB)
  Receive Date: 20160129
  Receipt Date: 20160129
  Transmission Date: 20160526
  Serious: Yes (Other)
  Sender: FDA-Public Use
  Company Number: GB-FRI-1000082360

PATIENT
  Age: 51 Year
  Sex: Female

DRUGS (1)
  1. LINACLOTIDE [Suspect]
     Active Substance: LINACLOTIDE
     Indication: IRRITABLE BOWEL SYNDROME
     Dosage: UNK
     Route: 048
     Dates: end: 201510

REACTIONS (2)
  - Appendiceal abscess [Unknown]
  - Intestinal perforation [Unknown]

NARRATIVE: CASE EVENT DATE: 201510
